FAERS Safety Report 5050295-9 (Version None)
Quarter: 2006Q3

REPORT INFORMATION
  Report Type: 
  Country: None (occurrence: None)
  Receive Date: 20060713
  Receipt Date: 20060630
  Transmission Date: 20061208
  Serious: Yes (Hospitalization, Other)
  Sender: FDA-Public Use
  Company Number: DE-AMGEN-UK185032

PATIENT
  Sex: Female
  Weight: 55 kg

DRUGS (10)
  1. ARANESP [Suspect]
     Indication: RENAL FAILURE CHRONIC
     Route: 040
     Dates: start: 20041127
  2. INSULIN ACTRAPID HUMAN [Concomitant]
     Route: 058
  3. DREISAVIT [Concomitant]
     Route: 048
     Dates: start: 19980101
  4. AMLODIPINE [Concomitant]
     Route: 048
     Dates: start: 20000101
  5. SODIUM POLYSTYRENE SULFONATE [Concomitant]
     Route: 048
     Dates: start: 19980101
  6. CARVEDILOL [Concomitant]
     Route: 048
     Dates: start: 20000101
  7. CALCIUM GLUCONATE [Concomitant]
     Route: 048
  8. ASPIRIN [Concomitant]
     Route: 048
  9. OMEPRAZOLE [Concomitant]
     Route: 048
  10. DESFERAL [Concomitant]
     Route: 041
     Dates: start: 20060624

REACTIONS (2)
  - ANTI-ERYTHROPOIETIN ANTIBODY [None]
  - HAEMOGLOBIN DECREASED [None]
